FAERS Safety Report 8080340-8 (Version None)
Quarter: 2012Q1

REPORT INFORMATION
  Report Type: 
  Country: None (occurrence: None)
  Receive Date: 20120130
  Receipt Date: 20120124
  Transmission Date: 20120608
  Serious: Yes (Death, Life-Threatening)
  Sender: FDA-Public Use
  Company Number: GB-PFIZER INC-2012019304

PATIENT
  Age: 30 Year
  Sex: Female
  Weight: 109.9 kg

DRUGS (7)
  1. PYRIDOXINE [Concomitant]
     Indication: VITAMIN B6 DEFICIENCY
     Dosage: UNK
     Dates: start: 19950801
  2. SOMATROPIN [Suspect]
     Indication: GROWTH HORMONE DEFICIENCY
     Dosage: UNK, 7 INJECTIONS A WEEK
     Dates: start: 19970403, end: 19971117
  3. PARACETAMOL [Concomitant]
     Indication: HEADACHE
     Dosage: UNK
     Dates: start: 19830101
  4. NORETHISTERONE ACETATE [Concomitant]
     Indication: BLOOD LUTEINISING HORMONE DECREASED
     Dosage: UNK
     Dates: start: 19950801
  5. IBUPROFEN [Concomitant]
     Indication: HEADACHE
     Dosage: UNK
     Dates: start: 19830101
  6. NORETHISTERONE ACETATE [Concomitant]
     Indication: HYPOGONADISM FEMALE
  7. NORETHISTERONE ACETATE [Concomitant]
     Indication: BLOOD FOLLICLE STIMULATING HORMONE DECREASED

REACTIONS (1)
  - DEATH [None]
